FAERS Safety Report 4656328-3 (Version None)
Quarter: 2005Q2

REPORT INFORMATION
  Report Type: 
  Country: None (occurrence: None)
  Receive Date: 20050509
  Receipt Date: 20050407
  Transmission Date: 20051028
  Serious: No
  Sender: FDA-Public Use
  Company Number: US-GLAXOSMITHKLINE-A0553186A

PATIENT
  Age: 68 Year
  Sex: Male

DRUGS (5)
  1. AVANDAMET [Suspect]
     Dosage: 4MG TWICE PER DAY
     Route: 048
     Dates: start: 20040101
  2. ENALAPRIL [Concomitant]
  3. AMARYL [Concomitant]
  4. OMEPRAZOLE [Concomitant]
  5. TRICOR [Concomitant]

REACTIONS (1)
  - BLOOD GLUCOSE DECREASED [None]
